FAERS Safety Report 5968208-1 (Version None)
Quarter: 2008Q4

REPORT INFORMATION
  Report Type: 
  Country: None (occurrence: None)
  Receive Date: 20081126
  Receipt Date: 20081125
  Transmission Date: 20090506
  Serious: Yes (Other)
  Sender: FDA-Public Use
  Company Number: A0758204A

PATIENT
  Age: 3 Year
  Sex: Male

DRUGS (1)
  1. CEFUROXIME [Suspect]
     Indication: SINUSITIS
     Dosage: 5ML TWICE PER DAY
     Dates: start: 20081104, end: 20081118

REACTIONS (3)
  - DIARRHOEA [None]
  - HYPERHIDROSIS [None]
  - RASH [None]
